FAERS Safety Report 22343968 (Version 1)
Quarter: 2023Q2

REPORT INFORMATION
  Report Type: Spontaneous
  Country: US (occurrence: None)
  Receive Date: 20230518
  Receipt Date: 20230518
  Transmission Date: 20230721
  Serious: Yes (Hospitalization)
  Sender: FDA-Public Use
  Company Number: None

PATIENT
  Age: 72 Year
  Sex: Male
  Weight: 97.16 kg

DRUGS (13)
  1. CAPECITABINE [Suspect]
     Active Substance: CAPECITABINE
     Indication: Appendix cancer
     Dosage: FREQUENCY : TWICE A DAY;?
     Route: 048
  2. AMLODIPINE [Concomitant]
  3. FLONASE [Concomitant]
     Active Substance: FLUTICASONE PROPIONATE
  4. IBUPROFEN [Concomitant]
  5. LEXAPRO [Concomitant]
     Active Substance: ESCITALOPRAM OXALATE
  6. METOPROLOL [Concomitant]
  7. Multivitamin Adult [Concomitant]
  8. MYCOPHENOLATE MOFETIL [Concomitant]
  9. NEOMYCIN SULFATE [Concomitant]
     Active Substance: NEOMYCIN SULFATE
  10. PRAVASTATIN SODIUM [Concomitant]
  11. Prochorperazide [Concomitant]
  12. TADALAFIL [Concomitant]
     Active Substance: TADALAFIL
  13. TYLENOL [Concomitant]
     Active Substance: ACETAMINOPHEN

REACTIONS (1)
  - Gastroenteritis [None]
